FAERS Safety Report 18259923 (Version 1)
Quarter: 2020Q3

REPORT INFORMATION
  Report Type: Report from Study
  Country: ZA (occurrence: ZA)
  Receive Date: 20200912
  Receipt Date: 20200912
  Transmission Date: 20201103
  Serious: Yes (Hospitalization)
  Sender: FDA-Public Use
  Company Number: ZA-B.I. PHARMACEUTICALS,INC./RIDGEFIELD-2020-BI-045867

PATIENT
  Age: 45 Year
  Sex: Male

DRUGS (3)
  1. FEDALOC [Concomitant]
     Active Substance: NIFEDIPINE
     Indication: PRODUCT USED FOR UNKNOWN INDICATION
  2. PRITOR (TELMISARTAN) [Suspect]
     Active Substance: TELMISARTAN
     Indication: HYPERTENSION
     Route: 048
  3. CARLOC [Concomitant]
     Active Substance: CARVEDILOL
     Indication: PRODUCT USED FOR UNKNOWN INDICATION

REACTIONS (1)
  - Renal failure [Unknown]
